FAERS Safety Report 4294508-X (Version None)
Quarter: 2004Q1

REPORT INFORMATION
  Report Type: 
  Country: None (occurrence: None)
  Receive Date: 20040211
  Receipt Date: 20040203
  Transmission Date: 20041129
  Serious: Yes (Death)
  Sender: FDA-Public Use
  Company Number: JP-JNJFOC-20040200972

PATIENT
  Age: 70 Year
  Sex: Male

DRUGS (1)
  1. FENTANYL [Suspect]
     Indication: CANCER PAIN
     Dosage: TRANSDERMAL
     Route: 062
     Dates: start: 20040120

REACTIONS (1)
  - CONDITION AGGRAVATED [None]
